FAERS Safety Report 20336272 (Version 1)
Quarter: 2022Q1

REPORT INFORMATION
  Report Type: Report from Study
  Country: GB (occurrence: GB)
  Receive Date: 20220114
  Receipt Date: 20220114
  Transmission Date: 20220423
  Serious: Yes (Other)
  Sender: FDA-Public Use
  Company Number: GB-TEVA-2022-GB-1997933

PATIENT
  Sex: Male

DRUGS (2)
  1. AJOVY [Suspect]
     Active Substance: FREMANEZUMAB-VFRM
     Dates: start: 20211220
  2. EPILIM [Concomitant]
     Active Substance: VALPROATE SODIUM

REACTIONS (3)
  - Dysarthria [Unknown]
  - Vision blurred [Unknown]
  - Headache [Unknown]
